FAERS Safety Report 11845409 (Version 3)
Quarter: 2016Q2

REPORT INFORMATION
  Report Type: Spontaneous
  Country: US (occurrence: US)
  Receive Date: 20151217
  Receipt Date: 20160527
  Transmission Date: 20160815
  Serious: No
  Sender: FDA-Public Use
  Company Number: US-PFIZER INC-2015429151

PATIENT
  Age: 59 Year
  Sex: Female
  Weight: 149 kg

DRUGS (3)
  1. REVATIO [Suspect]
     Active Substance: SILDENAFIL CITRATE
     Indication: PULMONARY HYPERTENSION
     Dosage: 20 MG, 6X/DAY
  2. OPSUMIT [Concomitant]
     Active Substance: MACITENTAN
     Indication: PULMONARY HYPERTENSION
     Dosage: 1 DF, 1X/DAY
     Dates: start: 20141230
  3. REVATIO [Suspect]
     Active Substance: SILDENAFIL CITRATE
     Dosage: 40 MG, 3X/DAY(USING ILLEGIBLE 2 OF 20 MG TAB)
     Route: 048

REACTIONS (5)
  - Product use issue [Not Recovered/Not Resolved]
  - Dyspnoea [Recovered/Resolved]
  - Nasopharyngitis [Recovered/Resolved]
  - Cough [Not Recovered/Not Resolved]
  - Malaise [Recovered/Resolved]
